FAERS Safety Report 4717511-1 (Version None)
Quarter: 2005Q3

REPORT INFORMATION
  Report Type: 
  Country: None (occurrence: None)
  Receive Date: 20050711
  Receipt Date: 20050330
  Transmission Date: 20060218
  Serious: No
  Sender: FDA-Public Use
  Company Number: A03200500899

PATIENT
  Age: 71 Year
  Sex: Male
  Weight: 77.1115 kg

DRUGS (7)
  1. UROXATRAL [Suspect]
     Indication: BENIGN PROSTATIC HYPERPLASIA
     Dosage: 10 MG OD - ORAL
     Route: 048
     Dates: start: 20030101
  2. TYLENOL COLD - ACETAMINOPHEN+DEXTROMETHORPHAN+PSEUDOEPHEDRINE - CAPLET [Suspect]
     Dosage: ORAL
     Route: 048
     Dates: start: 20050201, end: 20050201
  3. PREDNISONE [Concomitant]
  4. CLOTRIMAZOLE [Concomitant]
  5. OMEPRAZOLE [Concomitant]
  6. FLUTICASONE PROPIONATE [Concomitant]
  7. LEVOFLOXACIN [Concomitant]

REACTIONS (3)
  - DRUG INTERACTION [None]
  - DRUG INTERACTION INHIBITION [None]
  - URINE FLOW DECREASED [None]
